FAERS Safety Report 4720848-3 (Version None)
Quarter: 2005Q3

REPORT INFORMATION
  Report Type: 
  Country: None (occurrence: None)
  Receive Date: 20050721
  Receipt Date: 20030307
  Transmission Date: 20060218
  Serious: Yes (Other)
  Sender: FDA-Public Use
  Company Number: 200312126US

PATIENT
  Age: 17 Year
  Sex: Female

DRUGS (9)
  1. ANZEMET [Suspect]
     Dosage: DOSE: UNK
     Route: 051
     Dates: start: 20021201, end: 20021201
  2. MIDAZOLAM HCL [Concomitant]
     Indication: INDUCTION OF ANAESTHESIA
     Dosage: DOSE: UNK
     Dates: start: 20021201, end: 20021201
  3. DEXAMETHASONE [Concomitant]
     Indication: INDUCTION OF ANAESTHESIA
  4. LIDOCAINE [Concomitant]
     Indication: INDUCTION OF ANAESTHESIA
  5. PROPOFOL [Concomitant]
     Indication: INDUCTION OF ANAESTHESIA
  6. FENTANYL [Concomitant]
     Indication: INDUCTION OF ANAESTHESIA
  7. CISATRACURIUM BESILATE [Concomitant]
     Indication: INDUCTION OF ANAESTHESIA
  8. DESFLURANE [Concomitant]
  9. NITROUS OXIDE [Concomitant]

REACTIONS (12)
  - ACUTE MYOCARDIAL INFARCTION [None]
  - ARTERIOSPASM CORONARY [None]
  - CARDIAC FAILURE [None]
  - EJECTION FRACTION DECREASED [None]
  - ELECTROCARDIOGRAM ST SEGMENT DEPRESSION [None]
  - HEART RATE INCREASED [None]
  - HYPOKINESIA [None]
  - OXYGEN SATURATION DECREASED [None]
  - PULMONARY OEDEMA [None]
  - SINUS TACHYCARDIA [None]
  - TACHYCARDIA [None]
  - TROPONIN I INCREASED [None]
